FAERS Safety Report 11717776 (Version 4)
Quarter: 2015Q4

REPORT INFORMATION
  Report Type: Spontaneous
  Country: JP (occurrence: JP)
  Receive Date: 20151110
  Receipt Date: 20151230
  Transmission Date: 20160304
  Serious: Yes (Hospitalization)
  Sender: FDA-Public Use
  Company Number: JP-ROCHE-1658142

PATIENT
  Age: 79 Year
  Sex: Female

DRUGS (3)
  1. BRONUCK [Concomitant]
     Active Substance: BROMFENAC SODIUM
     Indication: MACULAR OEDEMA
  2. CRAVIT [Concomitant]
     Active Substance: LEVOFLOXACIN
  3. LUCENTIS [Suspect]
     Active Substance: RANIBIZUMAB
     Indication: RETINAL VEIN OCCLUSION
     Route: 050
     Dates: start: 20131203, end: 20150924

REACTIONS (2)
  - Vitreous haemorrhage [Recovered/Resolved]
  - Eye haemorrhage [Recovered/Resolved]

NARRATIVE: CASE EVENT DATE: 20150926
